FAERS Safety Report 16508520 (Version 1)
Quarter: 2019Q3

REPORT INFORMATION
  Report Type: Spontaneous
  Country: US (occurrence: US)
  Receive Date: 20190702
  Receipt Date: 20190702
  Transmission Date: 20191004
  Serious: No
  Sender: FDA-Public Use
  Company Number: US-ROCHE-2125550

PATIENT
  Sex: Female

DRUGS (1)
  1. XELODA [Suspect]
     Active Substance: CAPECITABINE
     Indication: BREAST CANCER
     Dosage: BID 14 DAYS ON AND 7 DAYS OFF; ONGOING
     Route: 048
     Dates: start: 20180117

REACTIONS (2)
  - No adverse event [Unknown]
  - Drug ineffective [Unknown]
